FAERS Safety Report 8776540 (Version 2)
Quarter: 2012Q4

REPORT INFORMATION
  Report Type: 
  Country: IT (occurrence: IT)
  Receive Date: 20120910
  Receipt Date: 20120927
  Transmission Date: 20130627
  Serious: Yes (Other)
  Sender: FDA-Public Use
  Company Number: PHHY2012IT078202

PATIENT
  Age: 5 Year
  Sex: Male

DRUGS (1)
  1. EXJADE [Suspect]
     Indication: THALASSAEMIA
     Dosage: 625 mg, daily
     Route: 048
     Dates: start: 20091002, end: 20120803

REACTIONS (12)
  - Hypertension [Recovering/Resolving]
  - Hyperpyrexia [Recovering/Resolving]
  - Glycosuria [Recovering/Resolving]
  - Ketonuria [Recovering/Resolving]
  - Diarrhoea [Recovering/Resolving]
  - Proteinuria [Recovering/Resolving]
  - Hypouricaemia [Unknown]
  - Alanine aminotransferase increased [Unknown]
  - Aspartate aminotransferase increased [Unknown]
  - Blood chloride decreased [Unknown]
  - Blood potassium decreased [Unknown]
  - Blood calcium decreased [Unknown]
